FAERS Safety Report 16178703 (Version 1)
Quarter: 2019Q2

REPORT INFORMATION
  Report Type: Spontaneous
  Country: US (occurrence: US)
  Receive Date: 20190409
  Receipt Date: 20190409
  Transmission Date: 20190711
  Serious: Yes (Hospitalization)
  Sender: FDA-Public Use
  Company Number: None

PATIENT
  Age: 54 Year
  Sex: Female

DRUGS (23)
  1. GAMUNEX [Suspect]
     Active Substance: HUMAN IMMUNOGLOBULIN G
     Indication: IMMUNODEFICIENCY
     Dosage: ?          OTHER FREQUENCY:INFUSE GAMUNEX 25G;?
     Route: 041
  2. ZOLPIDEM TARTRATE. [Concomitant]
     Active Substance: ZOLPIDEM TARTRATE
  3. LEVOTHYROXINE SODIUM. [Concomitant]
     Active Substance: LEVOTHYROXINE SODIUM
  4. GABAPENTIN. [Concomitant]
     Active Substance: GABAPENTIN
  5. ATORVASTATIN CALCIUM. [Concomitant]
     Active Substance: ATORVASTATIN CALCIUM
  6. ESCITALOPRAM OXALATE. [Concomitant]
     Active Substance: ESCITALOPRAM OXALATE
  7. GAMUNEX [Suspect]
     Active Substance: HUMAN IMMUNOGLOBULIN G
     Indication: SCHIZOPHRENIA
     Dosage: ?          OTHER FREQUENCY:INFUSE GAMUNEX 25G;?
     Route: 041
  8. TRIAMCINOLONE ACETATE [Concomitant]
     Active Substance: TRIAMCINOLONE ACETONIDE
  9. TGT OMEPRAZOLE [Concomitant]
  10. HYDROCONE/ACETAMINOPHEN [Concomitant]
  11. BACLOFEN. [Concomitant]
     Active Substance: BACLOFEN
  12. ALENDRONATE SODIUM. [Concomitant]
     Active Substance: ALENDRONATE SODIUM
  13. PALIPERIDONE ER [Concomitant]
     Active Substance: PALIPERIDONE
  14. MORPHINE SULFATE CR [Concomitant]
     Active Substance: MORPHINE SULFATE
  15. DOCUSATE SODIUM. [Concomitant]
     Active Substance: DOCUSATE SODIUM
  16. PREDNISONE. [Concomitant]
     Active Substance: PREDNISONE
  17. AMITRIPTYLINE HCL [Concomitant]
     Active Substance: AMITRIPTYLINE
  18. DONEPEZIL HCL [Concomitant]
     Active Substance: DONEPEZIL HYDROCHLORIDE
  19. NAPROXEN DR [Concomitant]
     Active Substance: NAPROXEN
  20. FLUCONAZOLE. [Concomitant]
     Active Substance: FLUCONAZOLE
  21. KETOCONAZOLE. [Concomitant]
     Active Substance: KETOCONAZOLE
  22. MYCOLOG -II [Concomitant]
  23. NYSTOP [Concomitant]
     Active Substance: NYSTATIN

REACTIONS (1)
  - Hospitalisation [None]
